FAERS Safety Report 6754069-X (Version None)
Quarter: 2010Q2

REPORT INFORMATION
  Report Type: 
  Country: None (occurrence: None)
  Receive Date: 20100601
  Receipt Date: 20100517
  Transmission Date: 20101027
  Serious: Yes (Hospitalization)
  Sender: FDA-Public Use
  Company Number: DSJ-2010-05604

PATIENT
  Age: 67 Year
  Sex: Male
  Weight: 59 kg

DRUGS (5)
  1. OLMESARTAN MEDOXOMIL [Suspect]
     Indication: ESSENTIAL HYPERTENSION
     Dosage: 20 MG, PER ORAL; 30 MG PER ORAL
     Route: 048
     Dates: start: 20091105, end: 20091204
  2. OLMESARTAN MEDOXOMIL [Suspect]
     Indication: ESSENTIAL HYPERTENSION
     Dosage: 20 MG, PER ORAL; 30 MG PER ORAL
     Route: 048
     Dates: start: 20091205
  3. DIOVAN [Concomitant]
  4. ALLOPURINOL [Concomitant]
  5. URALYT (MAGNESIUM PHOSPHATE, SOLIDAGO VIRGAUREA, ARNICA MONTANA EXTRAC [Concomitant]

REACTIONS (3)
  - HEART RATE DECREASED [None]
  - SUDDEN HEARING LOSS [None]
  - TINNITUS [None]
